FAERS Safety Report 11542241 (Version 1)
Quarter: 2015Q3

REPORT INFORMATION
  Report Type: Spontaneous
  Country: US (occurrence: US)
  Receive Date: 20150923
  Receipt Date: 20150923
  Transmission Date: 20151125
  Serious: No
  Sender: FDA-Public Use
  Company Number: US-TEVA-594922ACC

PATIENT
  Sex: Female

DRUGS (1)
  1. PLAN B ONE-STEP [Suspect]
     Active Substance: LEVONORGESTREL
     Indication: POST COITAL CONTRACEPTION
     Dates: start: 20150830, end: 20150830

REACTIONS (3)
  - Back pain [Unknown]
  - Vaginal haemorrhage [Not Recovered/Not Resolved]
  - Breast tenderness [Unknown]

NARRATIVE: CASE EVENT DATE: 20150905
